FAERS Safety Report 8566271-5 (Version None)
Quarter: 2012Q3

REPORT INFORMATION
  Report Type: 
  Country: None (occurrence: None)
  Receive Date: 20120803
  Receipt Date: 20110816
  Transmission Date: 20120928
  Serious: No
  Sender: FDA-Public Use
  Company Number: US-ABBOTT-11P-163-0846926-00

PATIENT
  Sex: Male

DRUGS (4)
  1. ASPIRIN [Concomitant]
     Indication: PRODUCT USED FOR UNKNOWN INDICATION
     Dosage: 30 MINUTES PRIOR TO DOSE OF NIASPAN
     Route: 048
     Dates: start: 20110807, end: 20110809
  2. ASPIRIN [Concomitant]
     Dosage: 30 MINUTES PRIOR TO DOSE OF NIASPAN
     Route: 048
  3. WELLBUTRIN [Concomitant]
     Indication: PRODUCT USED FOR UNKNOWN INDICATION
     Route: 048
  4. NIASPAN [Suspect]
     Indication: PRODUCT USED FOR UNKNOWN INDICATION
     Route: 048
     Dates: start: 20110807, end: 20110813

REACTIONS (3)
  - ABDOMINAL DISCOMFORT [None]
  - FLUSHING [None]
  - MUSCLE TIGHTNESS [None]
